FAERS Safety Report 4765305-3 (Version None)
Quarter: 2005Q3

REPORT INFORMATION
  Report Type: 
  Country: None (occurrence: None)
  Receive Date: 20050909
  Receipt Date: 20050519
  Transmission Date: 20060218
  Serious: Yes (Hospitalization, Disabling, Other)
  Sender: FDA-Public Use
  Company Number: US-MERCK-0505USA02330

PATIENT
  Age: 41 Year
  Sex: Female
  Weight: 67 kg

DRUGS (4)
  1. VIOXX [Suspect]
     Indication: SPINAL OSTEOARTHRITIS
     Route: 048
     Dates: start: 20030522, end: 20030630
  2. VIOXX [Suspect]
     Indication: NECK INJURY
     Route: 048
     Dates: start: 20030522, end: 20030630
  3. SKELAXIN [Concomitant]
     Route: 065
  4. IBUPROFEN [Concomitant]
     Route: 065

REACTIONS (27)
  - ACUTE MYOCARDIAL INFARCTION [None]
  - ANGINA UNSTABLE [None]
  - ANXIETY [None]
  - ANXIETY DISORDER [None]
  - BLOOD CHOLESTEROL INCREASED [None]
  - CARDIAC FAILURE CONGESTIVE [None]
  - CORONARY ARTERY DISEASE [None]
  - CORONARY ARTERY STENOSIS [None]
  - COUGH [None]
  - DEPRESSION [None]
  - DIZZINESS [None]
  - DYSLIPIDAEMIA [None]
  - DYSPEPSIA [None]
  - DYSPHAGIA [None]
  - HEART INJURY [None]
  - HEART RATE INCREASED [None]
  - HYPERTENSION [None]
  - MIGRAINE [None]
  - MYOCARDIAL INFARCTION [None]
  - NAUSEA [None]
  - NERVOUS SYSTEM DISORDER [None]
  - PAIN [None]
  - POST-TRAUMATIC HEADACHE [None]
  - REFLUX OESOPHAGITIS [None]
  - ROAD TRAFFIC ACCIDENT [None]
  - SINUS BRADYCARDIA [None]
  - VOMITING [None]
